FAERS Safety Report 18264973 (Version 1)
Quarter: 2020Q3

REPORT INFORMATION
  Report Type: Spontaneous
  Country: None (occurrence: US)
  Receive Date: 20200915
  Receipt Date: 20200915
  Transmission Date: 20201103
  Serious: No
  Sender: FDA-Public Use
  Company Number: US-JIANGSU HENGRUI MEDICINE CO., LTD.-2090709

PATIENT

DRUGS (4)
  1. REVLIMID [Suspect]
     Active Substance: LENALIDOMIDE
  2. METHOTREXATE. [Suspect]
     Active Substance: METHOTREXATE
     Dates: end: 20190213
  3. R CHOP [Suspect]
     Active Substance: CYCLOPHOSPHAMIDE\DOXORUBICIN\PREDNISONE\RITUXIMAB\VINCRISTINE
     Dates: start: 20181018, end: 20190213
  4. CYCLOPHOSPHAMIDE FOR INJECTION USP, 500 MG, 1 G AND 2 G PER SINGLE?DOS [Suspect]
     Active Substance: CYCLOPHOSPHAMIDE
     Indication: DIFFUSE LARGE B-CELL LYMPHOMA
     Dates: start: 20181018, end: 20190213

REACTIONS (3)
  - Neoplasm progression [Not Recovered/Not Resolved]
  - Skin disorder [Unknown]
  - Rash pruritic [Recovered/Resolved]
